FAERS Safety Report 15256958 (Version 1)
Quarter: 2018Q3

REPORT INFORMATION
  Report Type: Other
  Country: US (occurrence: US)
  Receive Date: 20180808
  Receipt Date: 20180808
  Transmission Date: 20181010
  Serious: Yes (Hospitalization, Disabling)
  Sender: FDA-Public Use
  Company Number: US-B. BRAUN MEDICAL INC.-2053473

PATIENT
  Age: 34 Year
  Sex: Female

DRUGS (1)
  1. SODIUM CHLORIDE INJECTIONS USP 0264?7800?00 0264?7800?10 [Suspect]
     Active Substance: SODIUM CHLORIDE

REACTIONS (6)
  - Exophthalmos [None]
  - Eyelid oedema [None]
  - Periorbital oedema [None]
  - Intraocular pressure increased [None]
  - Eye swelling [None]
  - Pupil fixed [None]
